APPROVED DRUG PRODUCT: GOLYTELY
Active Ingredient: POLYETHYLENE GLYCOL 3350; POTASSIUM CHLORIDE; SODIUM BICARBONATE; SODIUM CHLORIDE; SODIUM SULFATE ANHYDROUS
Strength: 236GM/BOT;2.97GM/BOT;6.74GM/BOT;5.86GM/BOT;22.74GM/BOT
Dosage Form/Route: FOR SOLUTION;ORAL
Application: N019011 | Product #001 | TE Code: AA
Applicant: AZURITY PHARMACEUTICALS INC
Approved: Jul 13, 1984 | RLD: Yes | RS: Yes | Type: RX